FAERS Safety Report 15020573 (Version 1)
Quarter: 2018Q2

REPORT INFORMATION
  Report Type: Spontaneous
  Country: US (occurrence: US)
  Receive Date: 20180618
  Receipt Date: 20180618
  Transmission Date: 20180711
  Serious: No
  Sender: FDA-Public Use
  Company Number: US-MALLINCKRODT-T201702312

PATIENT
  Sex: Male

DRUGS (1)
  1. HYDROCODONE/ACETAMINOPHEN [Suspect]
     Active Substance: ACETAMINOPHEN\HYDROCODONE
     Indication: PRODUCT USED FOR UNKNOWN INDICATION
     Dosage: 1 DF (10/325 MG), SINGLE (ONCE)
     Route: 048
     Dates: start: 20170530, end: 20170530

REACTIONS (2)
  - Drug diversion [Unknown]
  - Urticaria [Unknown]

NARRATIVE: CASE EVENT DATE: 20170530
